FAERS Safety Report 4622948-5 (Version None)
Quarter: 2005Q1

REPORT INFORMATION
  Report Type: 
  Country: None (occurrence: None)
  Receive Date: 20050330
  Receipt Date: 20050121
  Transmission Date: 20050727
  Serious: Yes (Death, Other)
  Sender: FDA-Public Use
  Company Number: PHFR2005GB00623

PATIENT
  Age: 41 Year
  Sex: Male
  Weight: 80 kg

DRUGS (7)
  1. CLOZARIL [Suspect]
     Indication: SCHIZOPHRENIA
     Dosage: UNK, UNK
     Route: 048
     Dates: start: 20011101
  2. CLOZARIL [Suspect]
     Dosage: 500MG/DAY
     Route: 048
     Dates: start: 20041124
  3. ATORVASTATIN [Concomitant]
     Indication: TRANSIENT ISCHAEMIC ATTACK
     Route: 048
     Dates: start: 20030710
  4. ACETYLSALICYLIC ACID SRT [Concomitant]
     Indication: TRANSIENT ISCHAEMIC ATTACK
     Dosage: UNK, UNK
     Route: 048
     Dates: start: 20030828
  5. PIRENZEPINE [Concomitant]
     Indication: SALIVARY HYPERSECRETION
     Dosage: 75MG/DAY
     Route: 048
     Dates: start: 20040731
  6. METOCLOPRAMIDE HYDROCHLORIDE [Concomitant]
     Indication: DYSPEPSIA
     Dosage: 30MG/DAY
     Route: 048
     Dates: start: 20030909
  7. OMEPRAZOLE [Concomitant]
     Indication: DYSPEPSIA
     Dosage: 20MG/DAY
     Route: 048
     Dates: start: 20020619

REACTIONS (11)
  - ABDOMINAL PAIN [None]
  - ARRHYTHMIA [None]
  - BALANCE DISORDER [None]
  - CIRCULATORY COLLAPSE [None]
  - COMA [None]
  - CONSTIPATION [None]
  - DEPRESSED LEVEL OF CONSCIOUSNESS [None]
  - HYPOTENSION [None]
  - MYOCARDIAL INFARCTION [None]
  - PALLOR [None]
  - VOMITING [None]
